FAERS Safety Report 11398599 (Version 1)
Quarter: 2015Q3

REPORT INFORMATION
  Report Type: Spontaneous
  Country: US (occurrence: None)
  Receive Date: 20150817
  Receipt Date: 20150817
  Transmission Date: 20151125
  Serious: Yes (Hospitalization)
  Sender: FDA-Public Use
  Company Number: None

PATIENT
  Age: 79 Year
  Sex: Male
  Weight: 70.1 kg

DRUGS (1)
  1. DABIGATRAN [Suspect]
     Active Substance: DABIGATRAN
     Route: 048
     Dates: start: 20120320, end: 20120705

REACTIONS (5)
  - Haemoglobin decreased [None]
  - Diverticulum [None]
  - Gastrointestinal haemorrhage [None]
  - Arteriovenous malformation [None]
  - Polyp [None]

NARRATIVE: CASE EVENT DATE: 20120704
